FAERS Safety Report 20669851 (Version 2)
Quarter: 2022Q2

REPORT INFORMATION
  Report Type: Spontaneous
  Country: BR (occurrence: BR)
  Receive Date: 20220404
  Receipt Date: 20220513
  Transmission Date: 20220721
  Serious: Yes (Other)
  Sender: FDA-Public Use
  Company Number: BR-ELI_LILLY_AND_COMPANY-BR202009003370

PATIENT
  Sex: Female

DRUGS (5)
  1. OLUMIANT [Suspect]
     Active Substance: BARICITINIB
     Indication: Rheumatoid arthritis
     Dosage: UNK, UNKNOWN
     Route: 048
     Dates: start: 20200827, end: 202104
  2. OLUMIANT [Suspect]
     Active Substance: BARICITINIB
     Dosage: 4 MG, DAILY
     Route: 048
     Dates: start: 20200827, end: 20211105
  3. OLUMIANT [Suspect]
     Active Substance: BARICITINIB
     Dosage: 4 MG, UNKNOWN
     Route: 048
     Dates: start: 20200827, end: 202111
  4. COVID-19 VACCINE [Concomitant]
     Indication: COVID-19 prophylaxis
     Dosage: UNK, UNKNOWN
     Route: 065
     Dates: start: 20210506
  5. COVID-19 VACCINE [Concomitant]
     Dosage: UNK

REACTIONS (20)
  - Inguinal hernia [Unknown]
  - Gastritis [Unknown]
  - Migraine [Unknown]
  - Hepatic steatosis [Unknown]
  - Abdominal distension [Not Recovered/Not Resolved]
  - Gastrointestinal disorder [Unknown]
  - Finger deformity [Unknown]
  - Constipation [Unknown]
  - Decreased immune responsiveness [Unknown]
  - Emotional disorder [Unknown]
  - Hyperhidrosis [Unknown]
  - Rheumatoid factor increased [Unknown]
  - Off label use [Unknown]
  - Arthralgia [Unknown]
  - Hypersensitivity [Unknown]
  - Hiatus hernia [Unknown]
  - Abdominal pain upper [Not Recovered/Not Resolved]
  - Haemoglobin decreased [Unknown]
  - Abdominal pain [Not Recovered/Not Resolved]
  - Urinary tract infection [Unknown]
